FAERS Safety Report 21043932 (Version 1)
Quarter: 2022Q3

REPORT INFORMATION
  Report Type: Spontaneous
  Country: US (occurrence: None)
  Receive Date: 20220705
  Receipt Date: 20220705
  Transmission Date: 20221027
  Serious: Yes (Death)
  Sender: FDA-Public Use
  Company Number: None

PATIENT
  Age: 66 Year
  Sex: Male

DRUGS (6)
  1. ROZLYTREK [Suspect]
     Active Substance: ENTRECTINIB
     Indication: Lung carcinoma cell type unspecified stage 0
     Dosage: TAKE 3 CAPSULES BY MOUTH DAILY
     Route: 048
     Dates: start: 20200919
  2. BENZONATATE CAP [Concomitant]
  3. LIPITOR TAB [Concomitant]
  4. NORCO TAB [Concomitant]
  5. PROMETHAZINE SOL DM [Concomitant]
  6. TYLENOL TAB [Concomitant]

REACTIONS (1)
  - Death [None]

NARRATIVE: CASE EVENT DATE: 20220702
